FAERS Safety Report 8974285 (Version 2)
Quarter: 2013Q1

REPORT INFORMATION
  Report Type: Spontaneous
  Country: US (occurrence: None)
  Receive Date: 20121212
  Receipt Date: 20130103
  Transmission Date: 20140127
  Serious: Yes (Other)
  Sender: FDA-Public Use
  Company Number: AUR-APL-2012-05188

PATIENT
  Age: 71 Year
  Sex: Female
  Weight: 102.06 kg

DRUGS (9)
  1. ALENDRONATE SODIUM [Suspect]
     Indication: PRODUCT USED FOR UNKNOWN INDICATION
     Route: 048
  2. PLAVIX (CLOPIDOGREL) [Concomitant]
  3. ZYRTEC (CETIRIZINE HYDROCHLORIDE) [Concomitant]
  4. ALPRAZOLAM (ALPRAZOLAM) [Concomitant]
  5. LISINOPRIL (LISINOPRIL) [Concomitant]
  6. EFFEXOR (VENLAFAXINE) [Concomitant]
  7. VESICARE (SOLIFENACIN) [Concomitant]
  8. SIMVASTATIN (SIMVASTATIN) [Concomitant]
  9. AMLODIPINE 9AMLODIPINE) [Concomitant]

REACTIONS (5)
  - Oesophageal disorder [None]
  - Bone pain [None]
  - Arthralgia [None]
  - Myalgia [None]
  - Fall [None]
